FAERS Safety Report 4700285-8 (Version None)
Quarter: 2005Q2

REPORT INFORMATION
  Report Type: 
  Country: None (occurrence: None)
  Receive Date: 20050209
  Receipt Date: 20050209
  Transmission Date: 20051028
  Serious: Yes (Other)
  Sender: FDA-Public Use
  Company Number: None

PATIENT
  Sex: Male
  Weight: 80.7403 kg

DRUGS (1)
  1. GENERIC CARDIZEM DILTIAZEM [Suspect]
     Indication: ATRIAL FIBRILLATION
     Dosage: 240MG
     Dates: start: 19981201, end: 19991201

REACTIONS (2)
  - ATRIAL FIBRILLATION [None]
  - THERAPEUTIC RESPONSE UNEXPECTED WITH DRUG SUBSTITUTION [None]
